FAERS Safety Report 7521281-1 (Version None)
Quarter: 2011Q2

REPORT INFORMATION
  Report Type: 
  Country: None (occurrence: None)
  Receive Date: 20110603
  Receipt Date: 20101130
  Transmission Date: 20111010
  Serious: Yes (Other)
  Sender: FDA-Public Use
  Company Number: US-BAYER-2010-000748

PATIENT
  Age: 60 Year
  Sex: Female
  Weight: 71 kg

DRUGS (3)
  1. CIPRO [Suspect]
     Indication: URINARY TRACT INFECTION
     Dosage: UNK
     Route: 048
     Dates: start: 20090101, end: 20090101
  2. OXYBUTYNIN [Suspect]
     Dosage: 1 SACHET, QD
     Route: 061
     Dates: start: 20091101
  3. OXYBUTYNIN [Suspect]
     Indication: HYPERTONIC BLADDER
     Dosage: 1 SACHET, QD
     Route: 061
     Dates: start: 20090801, end: 20091019

REACTIONS (3)
  - BLOOD ALKALINE PHOSPHATASE INCREASED [None]
  - ASPARTATE AMINOTRANSFERASE INCREASED [None]
  - ALANINE AMINOTRANSFERASE INCREASED [None]
